FAERS Safety Report 4824282-7 (Version None)
Quarter: 2005Q4

REPORT INFORMATION
  Report Type: 
  Country: None (occurrence: None)
  Receive Date: 20051108
  Receipt Date: 20051102
  Transmission Date: 20060501
  Serious: Yes (Other)
  Sender: FDA-Public Use
  Company Number: USA0510109815

PATIENT
  Age: 12 Year
  Sex: Male
  Weight: 69 kg

DRUGS (3)
  1. STRATTERA [Suspect]
     Indication: ATTENTION DEFICIT/HYPERACTIVITY DISORDER
     Dosage: 80 MG IN THE MORNING
     Dates: start: 20050525, end: 20050928
  2. CONCERTA [Concomitant]
  3. IMIPRAMINE [Concomitant]

REACTIONS (3)
  - FATIGUE [None]
  - HEPATIC STEATOSIS [None]
  - LETHARGY [None]
